FAERS Safety Report 25636309 (Version 1)
Quarter: 2025Q3

REPORT INFORMATION
  Report Type: Report from Study
  Country: US (occurrence: US)
  Receive Date: 20250803
  Receipt Date: 20250803
  Transmission Date: 20251020
  Serious: Yes (Hospitalization, Other)
  Sender: ABBVIE
  Company Number: US-ABBVIE-6274164

PATIENT
  Age: 79 Year
  Sex: Male

DRUGS (1)
  1. CREON [Suspect]
     Active Substance: PANCRELIPASE AMYLASE\PANCRELIPASE LIPASE\PANCRELIPASE PROTEASE
     Indication: Pancreatic failure
     Route: 048
     Dates: start: 20250226

REACTIONS (7)
  - Procedural haemorrhage [Unknown]
  - Pancreatic carcinoma [Unknown]
  - Fall [Unknown]
  - Haemorrhage [Unknown]
  - Back injury [Unknown]
  - Gastrointestinal disorder [Unknown]
  - Memory impairment [Unknown]

NARRATIVE: CASE EVENT DATE: 20250101
